FAERS Safety Report 5895673-0 (Version None)
Quarter: 2008Q3

REPORT INFORMATION
  Report Type: 
  Country: None (occurrence: None)
  Receive Date: 20080820
  Receipt Date: 20080516
  Transmission Date: 20090109
  Serious: Yes (Other)
  Sender: FDA-Public Use
  Company Number: DSA_62076_2008

PATIENT
  Sex: Female
  Weight: 24.9478 kg

DRUGS (6)
  1. DIASTAT [Suspect]
     Indication: CONVULSION
     Dosage: (7.5 MG PRN [PRN FOR SEIZURE THAT LAST GREATER THAN 5 MINUTES] RECTAL)
     Route: 054
     Dates: end: 20060101
  2. DIASTAT ACUDIAL [Suspect]
     Indication: CONVULSION
     Dosage: ([DF PRN FOR SEIZURES THAT LAST GREATER THAN 5 MINUTES] RECTAL)
     Dates: end: 20070101
  3. TOPAMAX [Concomitant]
  4. CLOBAZAM [Concomitant]
  5. PREVACID [Concomitant]
  6. STRATTERA [Concomitant]

REACTIONS (4)
  - CONVULSION [None]
  - DRUG INEFFECTIVE [None]
  - PHARMACEUTICAL PRODUCT COMPLAINT [None]
  - RESPIRATORY DEPRESSION [None]
